FAERS Safety Report 14044751 (Version 1)
Quarter: 2017Q4

REPORT INFORMATION
  Report Type: Spontaneous
  Country: US (occurrence: US)
  Receive Date: 20171005
  Receipt Date: 20171005
  Transmission Date: 20180321
  Serious: No
  Sender: FDA-Public Use
  Company Number: US-INDIVIOR LIMITED-INDV-100335-2017

PATIENT
  Sex: Female

DRUGS (1)
  1. SUBOXONE [Suspect]
     Active Substance: BUPRENORPHINE HYDROCHLORIDE\NALOXONE HYDROCHLORIDE
     Indication: DRUG USE DISORDER
     Dosage: 8MG, 3 TIMES PER DAY
     Route: 065
     Dates: start: 2016, end: 201703

REACTIONS (10)
  - Drug withdrawal syndrome [Not Recovered/Not Resolved]
  - Hyperhidrosis [Unknown]
  - Feeling of body temperature change [Unknown]
  - Pain [Unknown]
  - Therapy cessation [Recovered/Resolved]
  - Feeling abnormal [Unknown]
  - Agitation [Unknown]
  - Tremor [Unknown]
  - Product use issue [Recovered/Resolved]
  - Stress [Unknown]

NARRATIVE: CASE EVENT DATE: 2016
